FAERS Safety Report 23618530 (Version 1)
Quarter: 2024Q1

REPORT INFORMATION
  Report Type: Spontaneous
  Country: US (occurrence: US)
  Receive Date: 20240311
  Receipt Date: 20240311
  Transmission Date: 20240410
  Serious: No
  Sender: FDA-Public Use
  Company Number: US-PFIZER INC-PV202400032889

PATIENT
  Age: 66 Year
  Sex: Female

DRUGS (2)
  1. IBRANCE [Interacting]
     Active Substance: PALBOCICLIB
     Dosage: UNK
  2. PHENOBARBITAL [Interacting]
     Active Substance: PHENOBARBITAL
     Dosage: UNK

REACTIONS (2)
  - Wound [Unknown]
  - Drug interaction [Unknown]
